FAERS Safety Report 6393796-3 (Version None)
Quarter: 2009Q4

REPORT INFORMATION
  Report Type: 
  Country: None (occurrence: None)
  Receive Date: 20091008
  Receipt Date: 20090928
  Transmission Date: 20100525
  Serious: Yes (Other)
  Sender: FDA-Public Use
  Company Number: US-ELI_LILLY_AND_COMPANY-US200909006688

PATIENT
  Sex: Male
  Weight: 110 kg

DRUGS (15)
  1. GEMZAR [Suspect]
     Indication: SARCOMA METASTATIC
     Dosage: 1935 MG, UNK
     Route: 042
     Dates: start: 20080501
  2. DOCETAXEL [Concomitant]
     Indication: SARCOMA METASTATIC
     Dosage: 215 MG, 3/W
     Route: 042
     Dates: start: 20080501
  3. ASPIRIN [Concomitant]
  4. VIAGRA [Concomitant]
  5. CARDURA [Concomitant]
  6. METFORMIN [Concomitant]
  7. IBUPROFEN [Concomitant]
  8. PROCRIT [Concomitant]
  9. COUMADIN [Concomitant]
  10. LISINOPRIL [Concomitant]
  11. LOPRESSOR [Concomitant]
  12. PANTOPRAZOLE SODIUM [Concomitant]
  13. VYTORIN [Concomitant]
  14. INNOHEP [Concomitant]
  15. ARIXTRA [Concomitant]

REACTIONS (1)
  - PLEURAL EFFUSION [None]
